FAERS Safety Report 9548625 (Version 6)
Quarter: 2014Q4

REPORT INFORMATION
  Report Type: Spontaneous
  Country: US (occurrence: None)
  Receive Date: 20130627
  Receipt Date: 20141223
  Transmission Date: 20150529
  Serious: No
  Sender: FDA-Public Use
  Company Number: 1000043422

PATIENT
  Age: 70 Year
  Sex: Male

DRUGS (13)
  1. LINZESS [Suspect]
     Active Substance: LINACLOTIDE
     Indication: CONSTIPATION
     Dosage: 145 MCG (145 MCG, 1 IN 1 D), ORAL
     Route: 048
     Dates: start: 201303, end: 201303
  2. LINZESS [Suspect]
     Active Substance: LINACLOTIDE
     Indication: CONSTIPATION
     Dosage: 145 MCG (145 MCG, 1 IN 1 D), ORAL
     Route: 048
     Dates: start: 20130313, end: 2013
  3. LINZESS [Suspect]
     Active Substance: LINACLOTIDE
     Indication: CONSTIPATION
     Dosage: 290 MCG AS NEEDED (AS NEEDED), ORAL
     Route: 048
     Dates: start: 201401, end: 201404
  4. IBUPROFEN. [Concomitant]
     Active Substance: IBUPROFEN
     Indication: CONSTIPATION
     Route: 048
     Dates: start: 201401, end: 201404
  5. BENICAR [Concomitant]
     Active Substance: OLMESARTAN MEDOXOMIL
     Indication: CONSTIPATION
     Dosage: 290 UG (145 UG,2 IN 1 D)
     Route: 048
     Dates: start: 20140111, end: 201401
  6. BISACODYL. [Concomitant]
     Active Substance: BISACODYL
  7. MIRALAX (POLYETHYLENE GLYCOL) [Concomitant]
  8. LORAZEPAM. [Concomitant]
     Active Substance: LORAZEPAM
  9. LINZESS [Suspect]
     Active Substance: LINACLOTIDE
     Indication: CONSTIPATION
     Dosage: 145 MCG (145 MCG, AS NEEDED), ORAL
     Route: 048
     Dates: start: 20130605, end: 2013
  10. LINZESS [Suspect]
     Active Substance: LINACLOTIDE
     Indication: CONSTIPATION
     Dosage: 145 MCG PRN, ORAL
     Route: 048
     Dates: start: 2013, end: 2013
  11. LINZESS [Suspect]
     Active Substance: LINACLOTIDE
     Indication: CONSTIPATION
     Dosage: 290 MCG (145 MCG, 2 IN 1 DAY), ORAL
     Route: 048
     Dates: start: 20140111, end: 201401
  12. COLACE [Concomitant]
     Active Substance: DOCUSATE SODIUM
  13. PRUNE JUICE [Concomitant]

REACTIONS (11)
  - Abdominal pain upper [None]
  - Abdominal distension [None]
  - Drug ineffective [None]
  - Proctalgia [None]
  - Intentional product misuse [None]
  - Gastrointestinal motility disorder [None]
  - Diarrhoea [None]
  - Flatulence [None]
  - Eructation [None]
  - Unevaluable event [None]
  - Faecal incontinence [None]

NARRATIVE: CASE EVENT DATE: 201303
